FAERS Safety Report 11050897 (Version 2)
Quarter: 2015Q3

REPORT INFORMATION
  Report Type: Spontaneous
  Country: US (occurrence: US)
  Receive Date: 20150421
  Receipt Date: 20150701
  Transmission Date: 20151125
  Serious: Yes (Other)
  Sender: FDA-Public Use
  Company Number: US-BAYER-2015-153275

PATIENT
  Age: 37 Year
  Sex: Female

DRUGS (1)
  1. MIRENA [Suspect]
     Active Substance: LEVONORGESTREL
     Indication: CONTRACEPTION
     Dosage: 20 MCG/24HR, CONT
     Route: 015
     Dates: start: 20150415

REACTIONS (6)
  - Abdominal pain lower [None]
  - Post procedural haemorrhage [Not Recovered/Not Resolved]
  - Presyncope [None]
  - Complication of device insertion [None]
  - Procedural pain [None]
  - Procedural haemorrhage [None]

NARRATIVE: CASE EVENT DATE: 20150415
